FAERS Safety Report 24878314 (Version 1)
Quarter: 2025Q1

REPORT INFORMATION
  Report Type: Spontaneous
  Country: US (occurrence: US)
  Receive Date: 20250123
  Receipt Date: 20250123
  Transmission Date: 20250409
  Serious: Yes (Other)
  Sender: AMGEN
  Company Number: US-AMGEN-USASP2025009137

PATIENT
  Age: 77 Year
  Sex: Male

DRUGS (12)
  1. TARLATAMAB [Suspect]
     Active Substance: TARLATAMAB
     Indication: Small cell lung cancer
     Route: 065
  2. TARLATAMAB [Suspect]
     Active Substance: TARLATAMAB
     Route: 065
  3. TARLATAMAB [Suspect]
     Active Substance: TARLATAMAB
     Route: 065
  4. TARLATAMAB [Suspect]
     Active Substance: TARLATAMAB
     Route: 065
  5. TARLATAMAB [Suspect]
     Active Substance: TARLATAMAB
     Route: 065
  6. TARLATAMAB [Suspect]
     Active Substance: TARLATAMAB
     Route: 065
  7. TARLATAMAB [Suspect]
     Active Substance: TARLATAMAB
     Route: 065
  8. TARLATAMAB [Suspect]
     Active Substance: TARLATAMAB
     Route: 065
  9. CARBOPLATIN [Concomitant]
     Active Substance: CARBOPLATIN
     Indication: Small cell lung cancer
  10. ETOPOSIDE [Concomitant]
     Active Substance: ETOPOSIDE
     Indication: Small cell lung cancer
  11. ATEZOLIZUMAB [Concomitant]
     Active Substance: ATEZOLIZUMAB
     Indication: Small cell lung cancer
  12. LURBINECTEDIN [Concomitant]
     Active Substance: LURBINECTEDIN
     Indication: Small cell lung cancer

REACTIONS (3)
  - Metastases to central nervous system [Unknown]
  - Cytokine release syndrome [Recovered/Resolved]
  - Therapy partial responder [Unknown]
